FAERS Safety Report 9160290 (Version 1)
Quarter: 2013Q1

REPORT INFORMATION
  Report Type: Spontaneous
  Country: US (occurrence: US)
  Receive Date: 20130313
  Receipt Date: 20130313
  Transmission Date: 20140127
  Serious: Yes (Hospitalization)
  Sender: FDA-Public Use
  Company Number: US-GILEAD-2013-0071623

PATIENT
  Sex: Female

DRUGS (4)
  1. LETAIRIS [Suspect]
     Indication: PRODUCT USED FOR UNKNOWN INDICATION
     Dosage: 10 MG, QD
     Route: 048
     Dates: start: 20111025
  2. TYVASO [Concomitant]
  3. REVATIO [Concomitant]
  4. NITROPASTE [Concomitant]

REACTIONS (6)
  - Oxygen saturation decreased [Unknown]
  - Blood count abnormal [Unknown]
  - Chest pain [Unknown]
  - Hypotension [Unknown]
  - Respiratory distress [Unknown]
  - Dyspnoea [Unknown]
